FAERS Safety Report 20076139 (Version 1)
Quarter: 2021Q4

REPORT INFORMATION
  Report Type: Spontaneous
  Country: US (occurrence: None)
  Receive Date: 20211115
  Receipt Date: 20211115
  Transmission Date: 20220303
  Serious: No
  Sender: FDA-Public Use
  Company Number: None

PATIENT
  Sex: Female

DRUGS (1)
  1. TASIGNA [Suspect]
     Active Substance: NILOTINIB
     Indication: Chronic myeloid leukaemia
     Dosage: FREQUENCY : TWICE A DAY;?
     Route: 048
     Dates: start: 20211013

REACTIONS (9)
  - Rash [None]
  - COVID-19 [None]
  - Throat irritation [None]
  - Eye pruritus [None]
  - Ear pruritus [None]
  - Pyrexia [None]
  - Night sweats [None]
  - Pain in extremity [None]
  - Swelling [None]
